FAERS Safety Report 7912658-0 (Version None)
Quarter: 2011Q4

REPORT INFORMATION
  Report Type: 
  Country: None (occurrence: None)
  Receive Date: 20111114
  Receipt Date: 20111109
  Transmission Date: 20120403
  Serious: Yes (Other)
  Sender: FDA-Public Use
  Company Number: CHPA2011US15430

PATIENT
  Age: 86 Year
  Sex: Male

DRUGS (2)
  1. PERCOCET [Suspect]
     Indication: PAIN
     Dosage: 5 MG, QD
     Route: 048
  2. EXCEDRIN (MIGRAINE) [Suspect]
     Indication: PAIN
     Dosage: 2-4 CAPLETS, PER DAY
     Route: 048

REACTIONS (6)
  - INCORRECT DRUG ADMINISTRATION DURATION [None]
  - SCOLIOSIS [None]
  - ARTHRITIS [None]
  - ABDOMINAL DISCOMFORT [None]
  - DRUG INEFFECTIVE [None]
  - DRUG ADMINISTRATION ERROR [None]
